FAERS Safety Report 9516465 (Version 1)
Quarter: 2013Q1

REPORT INFORMATION
  Report Type: Spontaneous
  Country: US (occurrence: None)
  Receive Date: 20130305
  Receipt Date: 20130305
  Transmission Date: 20140127
  Serious: Yes (Other)
  Sender: FDA-Public Use
  Company Number: 163-21880-12080585

PATIENT
  Age: 83 Year
  Sex: Male
  Weight: 92.53 kg

DRUGS (4)
  1. REVLIMID (LENALIDOMIDE) (CAPSULES) [Suspect]
     Indication: PLASMA CELL MYELOMA
     Dosage: 10 MG, 21 IN 21 D, PO
     Route: 048
     Dates: start: 20100301
  2. LEVOTHYROXINE (LEVOTHYROXINE) [Concomitant]
  3. LIPITOR (ATORVASTATIN) [Concomitant]
  4. ATENOLOL (ATENOLOL) [Concomitant]

REACTIONS (1)
  - Hypotension [None]
